FAERS Safety Report 23138263 (Version 1)
Quarter: 2023Q4

REPORT INFORMATION
  Report Type: Spontaneous
  Country: CN (occurrence: None)
  Receive Date: 20231102
  Receipt Date: 20231102
  Transmission Date: 20240110
  Serious: Yes (Hospitalization)
  Sender: FDA-Public Use
  Company Number: 2023A246029

PATIENT
  Age: 24550 Day
  Sex: Female
  Weight: 62 kg

DRUGS (1)
  1. DAPAGLIFLOZIN [Suspect]
     Active Substance: DAPAGLIFLOZIN
     Indication: Diabetes mellitus
     Route: 048
     Dates: start: 20230307, end: 20231008

REACTIONS (3)
  - Vulvovaginal pruritus [Recovered/Resolved]
  - Vulval ulceration [Recovered/Resolved]
  - Glucose urine present [Recovered/Resolved]

NARRATIVE: CASE EVENT DATE: 20230402
